FAERS Safety Report 8670592 (Version 2)
Quarter: 2012Q4

REPORT INFORMATION
  Report Type: Report from Study
  Country: GR (occurrence: GR)
  Receive Date: 20120718
  Receipt Date: 20120926
  Transmission Date: 20130627
  Serious: Yes (Death, Other)
  Sender: FDA-Public Use
  Company Number: GR-ASTELLAS-2012US006208

PATIENT
  Age: 56 Year
  Sex: Male

DRUGS (5)
  1. ERLOTINIB TABLET [Suspect]
     Indication: NON-SMALL CELL LUNG CANCER
     Dosage: 150 mg, UID/QD
     Route: 048
  2. BEVACIZUMAB [Suspect]
     Indication: NON-SMALL CELL LUNG CANCER
     Dosage: 15 mg/kg, every 21 days
     Route: 065
  3. VINORELBINE [Suspect]
     Indication: NON-SMALL CELL LUNG CANCER
     Dosage: UNK
     Route: 065
  4. DOCETAXEL [Concomitant]
     Indication: NON-SMALL CELL LUNG CANCER
     Dosage: 75 mg/m2, every 21 days
     Route: 065
  5. CISPLATIN [Concomitant]
     Indication: NON-SMALL CELL LUNG CANCER
     Dosage: 75 mg/m2, every 21 days
     Route: 065

REACTIONS (6)
  - Pneumonia aspiration [Fatal]
  - Disease progression [Unknown]
  - Metastases to lung [Unknown]
  - Metastases to liver [Unknown]
  - Proteinuria [Unknown]
  - Hypertension [Unknown]
